FAERS Safety Report 7677769-6 (Version None)
Quarter: 2011Q3

REPORT INFORMATION
  Report Type: 
  Country: None (occurrence: None)
  Receive Date: 20110811
  Receipt Date: 20110808
  Transmission Date: 20111222
  Serious: Yes (Hospitalization)
  Sender: FDA-Public Use
  Company Number: US-GILEAD-2011-0042436

PATIENT
  Sex: Female

DRUGS (1)
  1. LETAIRIS [Suspect]
     Indication: PULMONARY HYPERTENSION
     Route: 048
     Dates: start: 20110623

REACTIONS (9)
  - POLYP [None]
  - LOWER GASTROINTESTINAL HAEMORRHAGE [None]
  - HEPARIN-INDUCED THROMBOCYTOPENIA [None]
  - TYPE 2 DIABETES MELLITUS [None]
  - ATRIAL FIBRILLATION [None]
  - PERIPHERAL VASCULAR DISORDER [None]
  - PULMONARY HYPERTENSION [None]
  - MITRAL VALVE REPLACEMENT [None]
  - HYPERTENSION [None]
